FAERS Safety Report 7194567-0 (Version None)
Quarter: 2010Q4

REPORT INFORMATION
  Report Type: 
  Country: None (occurrence: None)
  Receive Date: 20101223
  Receipt Date: 20100915
  Transmission Date: 20110411
  Serious: No
  Sender: FDA-Public Use
  Company Number: US-AMGEN-KDL438509

PATIENT

DRUGS (8)
  1. ENBREL [Suspect]
     Indication: PRODUCT USED FOR UNKNOWN INDICATION
     Dosage: 50 MG, QWK
     Route: 058
  2. FLUTICASONE PROPIONATE [Concomitant]
     Dosage: 50 A?G, UNK
  3. PREDNISONE [Concomitant]
     Dosage: 2.5 MG, UNK
  4. LISINOPRIL AND HYDROCHLOROTHIAZIDE [Concomitant]
     Dosage: 25 MG, UNK
  5. FOLIC ACID [Concomitant]
     Dosage: 1 MG, UNK
  6. FLUTICASONE/SALMETEROL [Concomitant]
  7. LOVAZA [Concomitant]
     Dosage: UNK UNK, UNK
  8. CALCIUM WITH VITAMIN D [Concomitant]
     Dosage: UNK UNK, UNK

REACTIONS (2)
  - FATIGUE [None]
  - INJECTION SITE PAIN [None]
